FAERS Safety Report 9283200 (Version 1)
Quarter: 2013Q2

REPORT INFORMATION
  Report Type: Spontaneous
  Country: US (occurrence: US)
  Receive Date: 20130510
  Receipt Date: 20130510
  Transmission Date: 20140414
  Serious: No
  Sender: FDA-Public Use
  Company Number: US-GLAXOSMITHKLINE-A0988116A

PATIENT
  Age: 63 Year
  Sex: Female
  Weight: 62 kg

DRUGS (6)
  1. TYKERB [Suspect]
     Indication: PRODUCT USED FOR UNKNOWN INDICATION
     Dosage: 1500MG PER DAY
     Route: 048
  2. FASLODEX [Suspect]
     Indication: PRODUCT USED FOR UNKNOWN INDICATION
     Dosage: 125MG UNKNOWN
     Route: 042
  3. VITAMIN D3 [Concomitant]
  4. CALCIUM [Concomitant]
     Route: 048
  5. ASPIRIN EC [Concomitant]
     Route: 048
  6. PROBIOTIC [Concomitant]
     Route: 048

REACTIONS (6)
  - Onychoclasis [Unknown]
  - Skin fissures [Unknown]
  - Diarrhoea [Recovered/Resolved]
  - Frequent bowel movements [Recovered/Resolved]
  - Dry skin [Unknown]
  - Arthralgia [Unknown]
